FAERS Safety Report 22181881 (Version 1)
Quarter: 2023Q2

REPORT INFORMATION
  Report Type: Spontaneous
  Country: US (occurrence: None)
  Receive Date: 20230406
  Receipt Date: 20230406
  Transmission Date: 20230721
  Serious: Yes (Other)
  Sender: FDA-Public Use
  Company Number: None

PATIENT
  Age: 16 Year
  Sex: Female
  Weight: 60.75 kg

DRUGS (1)
  1. ISOTRETINOIN [Suspect]
     Active Substance: ISOTRETINOIN
     Indication: Acne
     Dosage: OTHER QUANTITY : 1 TABLET(S);?FREQUENCY : DAILY;?
     Route: 048
     Dates: start: 20230119, end: 20230215

REACTIONS (18)
  - Anger [None]
  - Crying [None]
  - Anxiety [None]
  - Stress [None]
  - Panic attack [None]
  - Withdrawal syndrome [None]
  - Hallucination, auditory [None]
  - Decreased interest [None]
  - Apathy [None]
  - Disturbance in attention [None]
  - Fatigue [None]
  - Autophobia [None]
  - Vision blurred [None]
  - Night blindness [None]
  - Nightmare [None]
  - Depression [None]
  - Insomnia [None]
  - Impaired quality of life [None]

NARRATIVE: CASE EVENT DATE: 20230208
